FAERS Safety Report 20228243 (Version 1)
Quarter: 2021Q4

REPORT INFORMATION
  Report Type: Spontaneous
  Country: AU (occurrence: AU)
  Receive Date: 20211224
  Receipt Date: 20211224
  Transmission Date: 20220303
  Serious: Yes (Life-Threatening, Other)
  Sender: FDA-Public Use
  Company Number: AU-SA-2018SA120799

PATIENT
  Sex: Male

DRUGS (4)
  1. WARFARIN SODIUM [Suspect]
     Active Substance: WARFARIN SODIUM
     Indication: Thrombosis
     Dosage: UNK
     Route: 065
  2. CLOPIDOGREL BISULFATE [Suspect]
     Active Substance: CLOPIDOGREL BISULFATE
     Indication: Thrombosis
  3. ASPIRIN [Suspect]
     Active Substance: ASPIRIN
     Indication: Thrombosis
     Dosage: 100 MG ON ALTERNATE DAYS
  4. ASPIRIN [Suspect]
     Active Substance: ASPIRIN
     Dosage: REDUCED TO THREE TIMES PER WEEK

REACTIONS (6)
  - Gastrointestinal haemorrhage [Recovered/Resolved]
  - Arteriovenous malformation [Recovered/Resolved]
  - Melaena [Recovered/Resolved]
  - Peripheral embolism [Recovered/Resolved]
  - Thrombosis [Unknown]
  - Contusion [Recovered/Resolved]
